FAERS Safety Report 24145100 (Version 1)
Quarter: 2024Q3

REPORT INFORMATION
  Report Type: Spontaneous
  Country: US (occurrence: US)
  Receive Date: 20240729
  Receipt Date: 20240729
  Transmission Date: 20241016
  Serious: No
  Sender: ABBVIE
  Company Number: US-ABBVIE-5853058

PATIENT
  Age: 40 Year
  Sex: Female

DRUGS (3)
  1. BOTOX [Suspect]
     Active Substance: ONABOTULINUMTOXINA
     Indication: Headache
     Dosage: TIME INTERVAL: AS NECESSARY: 150U (TOTAL)
     Route: 065
     Dates: start: 202404, end: 202404
  2. BOTOX [Suspect]
     Active Substance: ONABOTULINUMTOXINA
     Indication: Headache
     Dosage: TIME INTERVAL: AS NECESSARY: 150U (TOTAL)
     Route: 065
     Dates: start: 202404, end: 202404
  3. BOTOX [Suspect]
     Active Substance: ONABOTULINUMTOXINA
     Indication: Headache
     Dosage: TIME INTERVAL: AS NECESSARY: 150U (TOTAL)
     Route: 065
     Dates: start: 202404, end: 202404

REACTIONS (12)
  - Feeling cold [Unknown]
  - Depressed mood [Unknown]
  - Migraine [Unknown]
  - Product preparation error [Unknown]
  - Diarrhoea [Unknown]
  - Influenza [Unknown]
  - Inflammation [Unknown]
  - Therapeutic response unexpected [Unknown]
  - Blood pressure increased [Unknown]
  - Chills [Unknown]
  - Fatigue [Unknown]
  - Illness [Recovered/Resolved]
